FAERS Safety Report 12920932 (Version 9)
Quarter: 2017Q3

REPORT INFORMATION
  Report Type: Report from Study
  Country: None (occurrence: BE)
  Receive Date: 20161107
  Receipt Date: 20170825
  Transmission Date: 20171127
  Serious: Yes (Hospitalization)
  Sender: FDA-Public Use
  Company Number: BE-ABBVIE-16P-013-1773022-00

PATIENT
  Sex: Female

DRUGS (4)
  1. DUODOPA [Suspect]
     Active Substance: CARBIDOPA\LEVODOPA
     Dosage: DOSES CONTINUOUSLY MONITORED AND ADAPTED
     Route: 050
     Dates: start: 20150901, end: 20160726
  2. DUODOPA [Suspect]
     Active Substance: CARBIDOPA\LEVODOPA
     Indication: PARKINSON^S DISEASE
     Dosage: AM= 3.5 ML; CD= 1 ML/H DURING 16 HRS; ED= 0.8 ML
     Route: 050
     Dates: start: 20150831, end: 20150901
  3. DUODOPA [Suspect]
     Active Substance: CARBIDOPA\LEVODOPA
     Dosage: AM= 0.3 ML; CD= 1.5 ML/H DURING 16 HRS; ED= 0.6 ML
     Route: 050
     Dates: start: 20160726, end: 20170823
  4. DUODOPA [Suspect]
     Active Substance: CARBIDOPA\LEVODOPA
     Dosage: MD= 0.3 ML; CD= 1.4 ML/H DURING 16 HRS; EDA= 0.6 ML
     Route: 050
     Dates: start: 20170823

REACTIONS (11)
  - Weight increased [Unknown]
  - Pneumonia [Recovering/Resolving]
  - Gait disturbance [Not Recovered/Not Resolved]
  - Upper limb fracture [Unknown]
  - Malnutrition [Recovering/Resolving]
  - Dysphagia [Not Recovered/Not Resolved]
  - Fall [Recovered/Resolved]
  - Malaise [Unknown]
  - Dyskinesia [Unknown]
  - Lung disorder [Unknown]
  - On and off phenomenon [Unknown]
